FAERS Safety Report 6457483-5 (Version None)
Quarter: 2009Q4

REPORT INFORMATION
  Report Type: 
  Country: None (occurrence: None)
  Receive Date: 20091024
  Receipt Date: 20091109
  Transmission Date: 20100525
  Serious: Yes (Death, Hospitalization)
  Sender: FDA-Public Use
  Company Number: 2009AC000239

PATIENT
  Age: 45 Year
  Sex: Female
  Weight: 91 kg

DRUGS (7)
  1. DIGOXIN [Suspect]
  2. GLIPIZIDE [Concomitant]
  3. NEXIUM [Concomitant]
  4. CYNBALTA [Concomitant]
  5. LANTUS [Concomitant]
  6. CRESTOR [Concomitant]
  7. VISTORIL [Concomitant]

REACTIONS (17)
  - AGGRESSION [None]
  - ANXIETY [None]
  - BLOOD PRESSURE DIASTOLIC INCREASED [None]
  - BRADYCARDIA [None]
  - CARDIAC DISORDER [None]
  - CARDIO-RESPIRATORY ARREST [None]
  - CHEST PAIN [None]
  - CORONARY ARTERY DISEASE [None]
  - DIZZINESS [None]
  - ECONOMIC PROBLEM [None]
  - GROIN PAIN [None]
  - HYPOTENSION [None]
  - ISCHAEMIC CARDIOMYOPATHY [None]
  - LOSS OF CONSCIOUSNESS [None]
  - MENTAL STATUS CHANGES [None]
  - PAIN [None]
  - TACHYCARDIA [None]
